FAERS Safety Report 7844843-0 (Version None)
Quarter: 2011Q4

REPORT INFORMATION
  Report Type: 
  Country: None (occurrence: None)
  Receive Date: 20111025
  Receipt Date: 20111018
  Transmission Date: 20120403
  Serious: Yes (Death)
  Sender: FDA-Public Use
  Company Number: JP-GLAXOSMITHKLINE-B0746077A

PATIENT
  Sex: Male

DRUGS (5)
  1. ROHYPNOL [Concomitant]
     Indication: INSOMNIA
     Dosage: 2MG PER DAY
     Route: 048
     Dates: start: 20100219, end: 20110509
  2. TEGRETOL [Concomitant]
     Indication: EPILEPSY
     Dosage: 800MG PER DAY
     Route: 048
     Dates: start: 20020704, end: 20110509
  3. DIAZEPAM [Concomitant]
     Indication: EPILEPSY
     Dosage: 8MG PER DAY
     Route: 048
     Dates: start: 20020704, end: 20110509
  4. LAMICTAL [Suspect]
     Indication: EPILEPSY
     Dosage: 50MG PER DAY
     Route: 048
     Dates: start: 20100423, end: 20100509
  5. AMOBAN [Concomitant]
     Indication: INSOMNIA
     Dosage: 10MG PER DAY
     Route: 048
     Dates: start: 20100219, end: 20110509

REACTIONS (7)
  - PYREXIA [None]
  - ACUTE RESPIRATORY FAILURE [None]
  - LOCAL SWELLING [None]
  - OBSTRUCTIVE AIRWAYS DISORDER [None]
  - RESPIRATORY ARREST [None]
  - SINUSITIS [None]
  - PHARYNGEAL INFLAMMATION [None]
